FAERS Safety Report 24362289 (Version 2)
Quarter: 2024Q3

REPORT INFORMATION
  Report Type: Spontaneous
  Country: CA (occurrence: CA)
  Receive Date: 20240925
  Receipt Date: 20240926
  Transmission Date: 20241016
  Serious: Yes (Other)
  Sender: PFIZER
  Company Number: CA-PFIZER INC-202101828631

PATIENT
  Age: 81 Year
  Sex: Male
  Weight: 95 kg

DRUGS (4)
  1. RUXIENCE [Suspect]
     Active Substance: RITUXIMAB-PVVR
     Indication: Rheumatoid arthritis
     Dosage: 1000 MG, EVERY 6 MONTH
     Route: 042
     Dates: start: 20220314
  2. RUXIENCE [Suspect]
     Active Substance: RITUXIMAB-PVVR
     Dosage: 1000 MG, Q 6 MONTHS (1DOSE Q 6MONTHS)
     Route: 042
     Dates: start: 20230405
  3. RUXIENCE [Suspect]
     Active Substance: RITUXIMAB-PVVR
     Dosage: 1000 MG, EVERY 6 MONTH
     Route: 042
     Dates: start: 20240404, end: 2024
  4. METHOTREXATE [Concomitant]
     Active Substance: METHOTREXATE
     Dosage: 25MG, 1X/DAY
     Route: 048

REACTIONS (2)
  - Lung neoplasm malignant [Unknown]
  - Off label use [Unknown]

NARRATIVE: CASE EVENT DATE: 20220314
